FAERS Safety Report 20443986 (Version 2)
Quarter: 2022Q1

REPORT INFORMATION
  Report Type: Spontaneous
  Country: US (occurrence: US)
  Receive Date: 20220208
  Receipt Date: 20220210
  Transmission Date: 20220423
  Serious: Yes (Death)
  Sender: FDA-Public Use
  Company Number: US-SA-2022SA040288

PATIENT
  Age: 53 Year
  Sex: Male

DRUGS (3)
  1. FABRAZYME [Suspect]
     Active Substance: AGALSIDASE BETA
     Indication: Fabry^s disease
     Dosage: 20 MG, QOW
     Route: 042
     Dates: start: 2020
  2. FABRAZYME [Suspect]
     Active Substance: AGALSIDASE BETA
     Indication: Eczema
     Dosage: 35 MG, QOW
     Route: 042
     Dates: start: 2020
  3. FABRAZYME [Suspect]
     Active Substance: AGALSIDASE BETA
     Dosage: 15 MG, QOW
     Route: 058
     Dates: start: 20211022, end: 20220201

REACTIONS (6)
  - COVID-19 [Fatal]
  - SARS-CoV-2 antibody test positive [Fatal]
  - Cough [Fatal]
  - Body temperature decreased [Fatal]
  - Incorrect route of product administration [Unknown]
  - Product use in unapproved indication [Unknown]

NARRATIVE: CASE EVENT DATE: 20220101
